FAERS Safety Report 4629902-8 (Version None)
Quarter: 2005Q2

REPORT INFORMATION
  Report Type: 
  Country: None (occurrence: None)
  Receive Date: 20050408
  Receipt Date: 20030116
  Transmission Date: 20051028
  Serious: Yes (Hospitalization)
  Sender: FDA-Public Use
  Company Number: JP-MERCK-0301USA01549

PATIENT
  Age: 31 Year
  Sex: Male

DRUGS (3)
  1. PEPCID [Suspect]
     Indication: DUODENAL ULCER
     Route: 042
     Dates: start: 20021231, end: 20030107
  2. CEFOTIAM HYDROCHLORIDE [Suspect]
     Indication: PERITONITIS
     Route: 042
     Dates: start: 20021228, end: 20030107
  3. OMEPRAL [Suspect]
     Indication: DUODENAL ULCER
     Route: 042
     Dates: start: 20021228, end: 20021230

REACTIONS (3)
  - BACK PAIN [None]
  - PAIN IN EXTREMITY [None]
  - RHABDOMYOLYSIS [None]
